FAERS Safety Report 15061573 (Version 1)
Quarter: 2018Q2

REPORT INFORMATION
  Report Type: Report from Study
  Country: JP (occurrence: JP)
  Receive Date: 20180625
  Receipt Date: 20180625
  Transmission Date: 20180711
  Serious: Yes (Disabling)
  Sender: FDA-Public Use
  Company Number: JP-ELI_LILLY_AND_COMPANY-JP201806011118

PATIENT
  Age: 78 Year
  Sex: Male
  Weight: 70 kg

DRUGS (8)
  1. CERNILTON                          /07493701/ [Concomitant]
     Dosage: UNK
     Route: 048
     Dates: start: 20160510, end: 20180104
  2. WARFARIN                           /00014803/ [Suspect]
     Active Substance: WARFARIN
     Indication: PRODUCT USED FOR UNKNOWN INDICATION
     Dosage: 2.5MG/DAY
     Route: 048
     Dates: end: 20180104
  3. FAMOTIDINE. [Concomitant]
     Active Substance: FAMOTIDINE
     Dosage: UNK
     Route: 048
  4. NICORANDIL [Concomitant]
     Active Substance: NICORANDIL
     Dosage: UNK
     Route: 048
  5. AMLODIPINE                         /00972402/ [Concomitant]
     Active Substance: AMLODIPINE BESYLATE
     Dosage: UNK
     Route: 048
  6. ASPIRIN                            /00002701/ [Suspect]
     Active Substance: ASPIRIN
     Indication: PRODUCT USED FOR UNKNOWN INDICATION
     Dosage: 100MG/DAY
     Route: 048
     Dates: start: 20160428, end: 20180104
  7. ATORVASTATIN                       /01326102/ [Concomitant]
     Active Substance: ATORVASTATIN
     Dosage: UNK
     Route: 048
  8. PRASUGREL HYDROCHLORIDE [Suspect]
     Active Substance: PRASUGREL HYDROCHLORIDE
     Indication: ANGINA PECTORIS
     Dosage: 3.75 MG, DAILY
     Route: 048
     Dates: start: 20160428, end: 20170908

REACTIONS (1)
  - Embolic stroke [Recovered/Resolved with Sequelae]

NARRATIVE: CASE EVENT DATE: 20180102
